APPROVED DRUG PRODUCT: POTASSIUM CHLORIDE
Active Ingredient: POTASSIUM CHLORIDE
Strength: 10MEQ
Dosage Form/Route: TABLET, EXTENDED RELEASE;ORAL
Application: A210097 | Product #001
Applicant: STRIDES PHARMA GLOBAL PTE LTD
Approved: Jun 17, 2019 | RLD: No | RS: No | Type: DISCN